FAERS Safety Report 24819507 (Version 1)
Quarter: 2025Q1

REPORT INFORMATION
  Report Type: Report from Study
  Country: DE (occurrence: DE)
  Receive Date: 20250108
  Receipt Date: 20250108
  Transmission Date: 20250409
  Serious: Yes (Other)
  Sender: PERRIGO
  Company Number: DE-PERRIGO-24DE011855

PATIENT
  Age: 30 Year
  Sex: Female
  Weight: 72 kg

DRUGS (1)
  1. ULIPRISTAL ACETATE [Suspect]
     Active Substance: ULIPRISTAL ACETATE
     Indication: Post coital contraception
     Route: 065
     Dates: start: 20240820, end: 20240820

REACTIONS (3)
  - Abortion spontaneous [Recovered/Resolved]
  - Vaginal haemorrhage [Recovered/Resolved]
  - Exposure during pregnancy [Recovered/Resolved]

NARRATIVE: CASE EVENT DATE: 20240101
